FAERS Safety Report 18504908 (Version 2)
Quarter: 2020Q4

REPORT INFORMATION
  Report Type: Spontaneous
  Country: US (occurrence: US)
  Receive Date: 20201115
  Receipt Date: 20201126
  Transmission Date: 20210114
  Serious: Yes (Other)
  Sender: FDA-Public Use
  Company Number: US-AUROBINDO-AUR-APL-2020-055892

PATIENT
  Age: 82 Year
  Sex: Female
  Weight: 81.64 kg

DRUGS (3)
  1. LEVOTHYROXINE. [Concomitant]
     Active Substance: LEVOTHYROXINE
     Indication: THYROID DISORDER
     Dosage: UNK
     Route: 065
  2. ESOMEPRAZOLE MAGNESIUM DELAYED-RELEASE CAPSULES 40 MG [Suspect]
     Active Substance: ESOMEPRAZOLE MAGNESIUM
     Indication: GASTROOESOPHAGEAL REFLUX DISEASE
     Dosage: 1 DOSAGE FORM, DAILY (1 CAPSULE)
     Route: 048
     Dates: start: 20201102, end: 20201102
  3. ESOMEPRAZOLE MAGNESIUM DELAYED-RELEASE CAPSULES 40 MG [Suspect]
     Active Substance: ESOMEPRAZOLE MAGNESIUM
     Indication: ULCER

REACTIONS (7)
  - Vomiting [Recovered/Resolved]
  - Product quality issue [Unknown]
  - Illness [Recovered/Resolved]
  - Dizziness [Recovered/Resolved]
  - Drug ineffective [Unknown]
  - Haemorrhage [Recovered/Resolved]
  - Saliva discolouration [Recovered/Resolved]

NARRATIVE: CASE EVENT DATE: 20201102
